FAERS Safety Report 19979844 (Version 1)
Quarter: 2021Q4

REPORT INFORMATION
  Report Type: Spontaneous
  Country: NG (occurrence: NG)
  Receive Date: 20211021
  Receipt Date: 20211021
  Transmission Date: 20220303
  Serious: Yes (Life-Threatening, Hospitalization)
  Sender: FDA-Public Use
  Company Number: NG-STRIDES ARCOLAB LIMITED-2021SP028986

PATIENT
  Age: 16 Year
  Sex: Female

DRUGS (4)
  1. PREDNISOLONE [Suspect]
     Active Substance: PREDNISOLONE
     Indication: Acute myeloid leukaemia
     Dosage: UNK, INDUCTION CHEMOTHERAPY
     Route: 065
  2. CYCLOPHOSPHAMIDE [Suspect]
     Active Substance: CYCLOPHOSPHAMIDE
     Indication: Acute myeloid leukaemia
     Dosage: UNK, INDUCTION CHEMOTHERAPY
     Route: 065
  3. ONCOVIN [Suspect]
     Active Substance: VINCRISTINE SULFATE
     Indication: Acute myeloid leukaemia
     Dosage: UNK, INDUCTION CHEMOTHERAPY
     Route: 065
  4. CYTARABINE [Suspect]
     Active Substance: CYTARABINE
     Indication: Acute myeloid leukaemia
     Dosage: UNK, INDUCTION CHEMOTHERAPY
     Route: 065

REACTIONS (5)
  - Neutropenic colitis [Unknown]
  - Neutropenia [Unknown]
  - Thrombocytopenia [Unknown]
  - Anaemia [Unknown]
  - Appendicitis [Recovered/Resolved]
